FAERS Safety Report 20536852 (Version 1)
Quarter: 2022Q1

REPORT INFORMATION
  Report Type: Spontaneous
  Country: US (occurrence: None)
  Receive Date: 20220302
  Receipt Date: 20220302
  Transmission Date: 20220423
  Serious: Yes (Hospitalization, Other)
  Sender: FDA-Public Use
  Company Number: US-Unichem Pharmaceuticals (USA) Inc-UCM202202-000182

PATIENT
  Age: 9 Year
  Sex: Male

DRUGS (2)
  1. CLONIDINE HYDROCHLORIDE [Suspect]
     Active Substance: CLONIDINE HYDROCHLORIDE
     Indication: Somatotropin stimulation test
     Dosage: UNKNOWN
  2. ARGININE [Suspect]
     Active Substance: ARGININE
     Indication: Somatotropin stimulation test
     Dosage: UNKNOWN

REACTIONS (2)
  - Haematuria [Recovered/Resolved]
  - Product use in unapproved indication [Unknown]
